FAERS Safety Report 6131420-5 (Version None)
Quarter: 2009Q1

REPORT INFORMATION
  Report Type: 
  Country: None (occurrence: None)
  Receive Date: 20090325
  Receipt Date: 20080609
  Transmission Date: 20090719
  Serious: No
  Sender: FDA-Public Use
  Company Number: US-BRISTOL-MYERS SQUIBB COMPANY-14220479

PATIENT
  Age: 73 Year
  Sex: Male

DRUGS (10)
  1. ERBITUX [Suspect]
     Indication: HEAD AND NECK CANCER
  2. ETHYOL [Suspect]
     Indication: HEAD AND NECK CANCER
     Dosage: INITIATED IN MAY 2008
     Route: 042
     Dates: start: 20080605, end: 20080605
  3. NORVASC [Concomitant]
  4. SYNTHROID [Concomitant]
  5. ATENOLOL [Concomitant]
  6. DIGOXIN [Concomitant]
  7. LISINOPRIL [Concomitant]
  8. NEXIUM [Concomitant]
  9. RADIATION THERAPY [Concomitant]
     Indication: HEAD AND NECK CANCER
  10. COUMADIN [Concomitant]

REACTIONS (1)
  - RASH PUSTULAR [None]
